FAERS Safety Report 9538025 (Version 1)
Quarter: 2013Q3

REPORT INFORMATION
  Report Type: Spontaneous
  Country: RO (occurrence: RO)
  Receive Date: 20130919
  Receipt Date: 20130919
  Transmission Date: 20140515
  Serious: Yes (Death)
  Sender: FDA-Public Use
  Company Number: RO-ROCHE-1278374

PATIENT
  Age: 64 Year
  Sex: Male

DRUGS (1)
  1. VEMURAFENIB [Suspect]
     Indication: METASTATIC MALIGNANT MELANOMA
     Dosage: 8 TABLETS DAILY
     Route: 065
     Dates: start: 20120315, end: 20120911

REACTIONS (3)
  - Asthenia [Fatal]
  - Weight decreased [Fatal]
  - Disease progression [Fatal]
